FAERS Safety Report 17528424 (Version 4)
Quarter: 2020Q3

REPORT INFORMATION
  Report Type: Report from Study
  Country: None (occurrence: US)
  Receive Date: 20200312
  Receipt Date: 20200728
  Transmission Date: 20201102
  Serious: Yes (Other)
  Sender: FDA-Public Use
  Company Number: US-ABBVIE-20K-163-3269392-00

PATIENT
  Sex: Male
  Weight: 158.9 kg

DRUGS (11)
  1. HUMIRA [Suspect]
     Active Substance: ADALIMUMAB
     Route: 058
     Dates: start: 2018
  2. LANTUS [Concomitant]
     Active Substance: INSULIN GLARGINE
     Indication: DIABETES MELLITUS
  3. RANITIDINE. [Concomitant]
     Active Substance: RANITIDINE
     Indication: GASTROOESOPHAGEAL REFLUX DISEASE
  4. LISINOPRIL. [Concomitant]
     Active Substance: LISINOPRIL
     Indication: PRODUCT USED FOR UNKNOWN INDICATION
  5. HUMIRA [Suspect]
     Active Substance: ADALIMUMAB
     Indication: PSORIASIS
     Route: 058
     Dates: start: 2018, end: 2018
  6. THYROXINE [Concomitant]
     Active Substance: LEVOTHYROXINE
     Indication: PRODUCT USED FOR UNKNOWN INDICATION
  7. GLIPIZIDE. [Concomitant]
     Active Substance: GLIPIZIDE
     Indication: DIABETES MELLITUS
  8. FUROSEMIDE. [Concomitant]
     Active Substance: FUROSEMIDE
     Indication: ARTHRALGIA
  9. ETODOLAC. [Concomitant]
     Active Substance: ETODOLAC
     Indication: ARTHRALGIA
  10. METFORMIN [Concomitant]
     Active Substance: METFORMIN HYDROCHLORIDE
     Indication: DIABETES MELLITUS
  11. TIMOLOL. [Concomitant]
     Active Substance: TIMOLOL
     Indication: PRODUCT USED FOR UNKNOWN INDICATION
     Dosage: EYE DROPS

REACTIONS (9)
  - Eye disorder [Recovered/Resolved]
  - Herpes ophthalmic [Recovered/Resolved]
  - Immunodeficiency [Not Recovered/Not Resolved]
  - Squamous cell carcinoma of skin [Recovered/Resolved]
  - Macular oedema [Recovering/Resolving]
  - Nasopharyngitis [Recovered/Resolved]
  - Infection [Unknown]
  - Diabetic eye disease [Unknown]
  - Herpes zoster [Recovered/Resolved]

NARRATIVE: CASE EVENT DATE: 2018
